FAERS Safety Report 7003698-7 (Version None)
Quarter: 2010Q3

REPORT INFORMATION
  Report Type: 
  Country: None (occurrence: None)
  Receive Date: 20100920
  Receipt Date: 20090305
  Transmission Date: 20110219
  Serious: Yes (Other)
  Sender: FDA-Public Use
  Company Number: US-WYE-H08478409

PATIENT
  Sex: Female

DRUGS (5)
  1. PROTONIX [Suspect]
     Indication: GASTROINTESTINAL ULCER
     Route: 048
     Dates: start: 20081101
  2. TRAZODONE HCL [Concomitant]
  3. NEURONTIN [Concomitant]
     Indication: NEURALGIA
  4. CLONAZEPAM [Concomitant]
  5. HYDROCODONE [Concomitant]
     Indication: PAIN

REACTIONS (1)
  - DYSPHAGIA [None]
